FAERS Safety Report 7214588-9 (Version None)
Quarter: 2011Q1

REPORT INFORMATION
  Report Type: 
  Country: None (occurrence: None)
  Receive Date: 20110107
  Receipt Date: 20101226
  Transmission Date: 20110831
  Serious: Yes (Other)
  Sender: FDA-Public Use
  Company Number: IL-SANOFI-AVENTIS-2010SA078284

PATIENT
  Sex: Male

DRUGS (3)
  1. MULTAQ [Suspect]
     Indication: ATRIAL FIBRILLATION
     Route: 048
  2. BISOPROLOL [Concomitant]
  3. ATORVASTATIN [Concomitant]

REACTIONS (3)
  - ATRIAL FLUTTER [None]
  - EXTRASYSTOLES [None]
  - ATRIAL FIBRILLATION [None]
